FAERS Safety Report 20729208 (Version 4)
Quarter: 2022Q2

REPORT INFORMATION
  Report Type: Report from Study
  Country: US (occurrence: US)
  Receive Date: 20220420
  Receipt Date: 20220523
  Transmission Date: 20220721
  Serious: No
  Sender: FDA-Public Use
  Company Number: US-NOVARTISTESTPH-NVSC2022US091119

PATIENT
  Sex: Male
  Weight: 77.11 kg

DRUGS (1)
  1. ENTRESTO [Suspect]
     Active Substance: SACUBITRIL\VALSARTAN
     Indication: Cardiac failure
     Dosage: 1 DOSAGE FORM, BID (49/51)MG
     Route: 048
     Dates: start: 202201

REACTIONS (4)
  - Hunger [Unknown]
  - Weight increased [Unknown]
  - Pollakiuria [Unknown]
  - Fatigue [Unknown]
